FAERS Safety Report 11803381 (Version 2)
Quarter: 2016Q1

REPORT INFORMATION
  Report Type: Spontaneous
  Country: US (occurrence: US)
  Receive Date: 20151204
  Receipt Date: 20160113
  Transmission Date: 20160525
  Serious: Yes (Hospitalization, Other)
  Sender: FDA-Public Use
  Company Number: US-AMGEN-USASP2015126984

PATIENT
  Age: 70 Year
  Sex: Female
  Weight: 49.88 kg

DRUGS (4)
  1. HUMIRA [Concomitant]
     Active Substance: ADALIMUMAB
     Dosage: UNK
  2. XELJANZ [Suspect]
     Active Substance: TOFACITINIB CITRATE
     Indication: PRODUCT USED FOR UNKNOWN INDICATION
     Dosage: UNK
     Route: 065
  3. ENBREL [Suspect]
     Active Substance: ETANERCEPT
     Indication: JUVENILE IDIOPATHIC ARTHRITIS
     Dosage: UNK
     Route: 065
  4. METHOTREXATE [Suspect]
     Active Substance: METHOTREXATE
     Indication: PRODUCT USED FOR UNKNOWN INDICATION
     Route: 065

REACTIONS (9)
  - Therapeutic response decreased [Unknown]
  - Pharyngeal disorder [Unknown]
  - Loss of consciousness [Unknown]
  - Drug hypersensitivity [Unknown]
  - Feeling abnormal [Unknown]
  - Malaise [Unknown]
  - Drug ineffective [Unknown]
  - Dyspnoea [Unknown]
  - Lung disorder [Unknown]
